FAERS Safety Report 7267106-3 (Version None)
Quarter: 2011Q1

REPORT INFORMATION
  Report Type: 
  Country: None (occurrence: None)
  Receive Date: 20110201
  Receipt Date: 20110126
  Transmission Date: 20110831
  Serious: Yes (Death, Hospitalization, Other)
  Sender: FDA-Public Use
  Company Number: PHHY2011US05885

PATIENT
  Sex: Male

DRUGS (10)
  1. ZOMETA [Suspect]
  2. REVLIMID [Suspect]
     Indication: MULTIPLE MYELOMA
     Dosage: 10 MG, UNK
     Route: 048
     Dates: start: 20100624
  3. EPOGEN [Concomitant]
  4. SIMVASTATIN [Concomitant]
     Dosage: 40 MG, UNK
     Route: 048
  5. CARVEDILOL [Concomitant]
     Dosage: 50 MG, UNK
     Route: 048
  6. DEXAMETHASONE [Concomitant]
     Dosage: 40 MG, UNK
  7. REVLIMID [Suspect]
     Dosage: 5 MG, UNK
     Route: 048
     Dates: start: 20100616
  8. ASPIRIN [Concomitant]
     Route: 048
  9. VICODIN [Concomitant]
  10. ALLOPURINOL [Concomitant]
     Dosage: 100 MG, UNK
     Route: 048

REACTIONS (21)
  - ANXIETY [None]
  - LIGHT CHAIN DISEASE [None]
  - RESPIRATORY DISTRESS [None]
  - HYPOTENSION [None]
  - PRESYNCOPE [None]
  - RENAL FAILURE ACUTE [None]
  - PROTEINURIA [None]
  - LEFT VENTRICULAR DYSFUNCTION [None]
  - AORTIC VALVE INCOMPETENCE [None]
  - LUNG DISORDER [None]
  - MITRAL VALVE INCOMPETENCE [None]
  - CARDIAC FAILURE CONGESTIVE [None]
  - EJECTION FRACTION DECREASED [None]
  - CARDIOMEGALY [None]
  - AGONAL RHYTHM [None]
  - PULMONARY OEDEMA [None]
  - NEOPLASM MALIGNANT [None]
  - RALES [None]
  - LUNG INFILTRATION [None]
  - URINARY TRACT OBSTRUCTION [None]
  - PULSELESS ELECTRICAL ACTIVITY [None]
